FAERS Safety Report 4793807-2 (Version None)
Quarter: 2005Q4

REPORT INFORMATION
  Report Type: 
  Country: None (occurrence: None)
  Receive Date: 20051006
  Receipt Date: 20050923
  Transmission Date: 20060501
  Serious: Yes (Hospitalization, Other)
  Sender: FDA-Public Use
  Company Number: KII-2005-0018766

PATIENT
  Age: 17 Year
  Sex: Male
  Weight: 90 kg

DRUGS (5)
  1. OXYCONTIN [Suspect]
     Indication: INTENTIONAL DRUG MISUSE
     Dosage: ORAL
     Route: 048
  2. MARIJUANA(CANNABIS) [Suspect]
     Indication: INTENTIONAL DRUG MISUSE
  3. AMFETAMINE(AMFETAMINE) [Suspect]
     Indication: INTENTIONAL DRUG MISUSE
  4. ACETAMINOPHEN [Suspect]
     Indication: DRUG USE FOR UNKNOWN INDICATION
  5. ETHANOL(ETHANOL) [Suspect]
     Indication: DRUG USE FOR UNKNOWN INDICATION

REACTIONS (14)
  - AGGRESSION [None]
  - ANION GAP INCREASED [None]
  - BLOOD GLUCOSE INCREASED [None]
  - DEPRESSED LEVEL OF CONSCIOUSNESS [None]
  - DYSPNOEA [None]
  - HYPERHIDROSIS [None]
  - MENTAL STATUS CHANGES [None]
  - MIOSIS [None]
  - OVERDOSE [None]
  - OXYGEN SATURATION DECREASED [None]
  - POLYSUBSTANCE ABUSE [None]
  - RESPIRATORY DISORDER [None]
  - SOMNOLENCE [None]
  - WRONG DRUG ADMINISTERED [None]
